FAERS Safety Report 7487831-9 (Version None)
Quarter: 2011Q2

REPORT INFORMATION
  Report Type: 
  Country: None (occurrence: None)
  Receive Date: 20110518
  Receipt Date: 20110510
  Transmission Date: 20111010
  Serious: Yes (Hospitalization)
  Sender: FDA-Public Use
  Company Number: SE-NOVOPROD-314507

PATIENT
  Sex: Male
  Weight: 113 kg

DRUGS (7)
  1. SIMVASTATIN [Concomitant]
     Dosage: 10 MG, QD
  2. ACETYL SALICYLIC ACID USP BAT [Concomitant]
     Indication: PRODUCT USED FOR UNKNOWN INDICATION
     Dosage: 75 MG, QD
     Route: 048
  3. FELODIPINE [Concomitant]
     Indication: PRODUCT USED FOR UNKNOWN INDICATION
     Dosage: 5 MG, QD
     Route: 048
  4. VICTOZA [Suspect]
     Indication: TYPE 2 DIABETES MELLITUS
     Dosage: UNK
     Route: 058
     Dates: start: 20100101, end: 20100101
  5. VICTOZA [Suspect]
     Dosage: UNK
     Dates: start: 20100622, end: 20100823
  6. NOVOLOG [Concomitant]
     Indication: TYPE 2 DIABETES MELLITUS
     Dosage: 35 IE, QD
     Route: 058
  7. FUROSEMIDE [Concomitant]
     Indication: PRODUCT USED FOR UNKNOWN INDICATION
     Dosage: 40-160 MG

REACTIONS (6)
  - RENAL IMPAIRMENT [None]
  - BLOOD CREATININE INCREASED [None]
  - BLOOD UREA INCREASED [None]
  - NAUSEA [None]
  - WEIGHT DECREASED [None]
  - DECREASED APPETITE [None]
